FAERS Safety Report 5927291-X (Version None)
Quarter: 2008Q4

REPORT INFORMATION
  Report Type: 
  Country: None (occurrence: None)
  Receive Date: 20081017
  Receipt Date: 20081003
  Transmission Date: 20090506
  Serious: Yes (Hospitalization)
  Sender: FDA-Public Use
  Company Number: 2008BI011605

PATIENT
  Age: 52 Year
  Sex: Male

DRUGS (3)
  1. AVONEX [Suspect]
     Indication: MULTIPLE SCLEROSIS
     Dosage: 30 UG;QW; IM
     Route: 030
     Dates: start: 20060201, end: 20080614
  2. AVONEX [Suspect]
     Indication: MULTIPLE SCLEROSIS
     Dosage: 30 UG;QW; IM
     Route: 030
     Dates: start: 20080801
  3. . [Concomitant]

REACTIONS (8)
  - FALL [None]
  - FATIGUE [None]
  - HAEMORRHAGIC STROKE [None]
  - HERPES VIRUS INFECTION [None]
  - INFARCTION [None]
  - INFLUENZA LIKE ILLNESS [None]
  - INSOMNIA [None]
  - URINARY INCONTINENCE [None]
